FAERS Safety Report 10155904 (Version 2)
Quarter: 2014Q2

REPORT INFORMATION
  Report Type: Report from Study
  Country: MX (occurrence: MX)
  Receive Date: 20140506
  Receipt Date: 20140515
  Transmission Date: 20141212
  Serious: Yes (Death, Other)
  Sender: FDA-Public Use
  Company Number: PHHY2014MX054340

PATIENT
  Age: 40 Year
  Sex: Male
  Weight: 70 kg

DRUGS (2)
  1. GLIVEC [Suspect]
     Indication: CHRONIC MYELOID LEUKAEMIA
     Dosage: 600 MG, UNK
     Dates: start: 20140114, end: 20140310
  2. GLIVEC [Suspect]
     Dosage: 300 MG, BID
     Route: 065
     Dates: start: 20140114, end: 20140310

REACTIONS (10)
  - Malignant neoplasm progression [Fatal]
  - H1N1 influenza [Unknown]
  - Hepatic haematoma [Unknown]
  - Neurological decompensation [Unknown]
  - Hepatic rupture [Unknown]
  - Pneumonia [Unknown]
  - Hepatic failure [Unknown]
  - Epistaxis [Unknown]
  - Pyrexia [Unknown]
  - Chronic myeloid leukaemia [Fatal]
